FAERS Safety Report 9720119 (Version 1)
Quarter: 2013Q4

REPORT INFORMATION
  Report Type: Report from Study
  Country: DE (occurrence: DE)
  Receive Date: 20131128
  Receipt Date: 20131128
  Transmission Date: 20140711
  Serious: Yes (Hospitalization, Other)
  Sender: FDA-Public Use
  Company Number: DE-UCBSA-104324

PATIENT
  Age: 78 Year
  Sex: Female
  Weight: 80 kg

DRUGS (14)
  1. NEUPRO [Suspect]
     Indication: RESTLESS LEGS SYNDROME
     Dosage: 3 MG/24 HOURS
     Route: 062
  2. TARGIN [Suspect]
     Indication: RESTLESS LEGS SYNDROME
     Dosage: 5/2.5 MG
     Route: 048
  3. TARGIN [Suspect]
     Indication: RESTLESS LEGS SYNDROME
     Dosage: 10/5 MG
     Route: 048
  4. L-THYROXIN [Concomitant]
     Indication: HYPOTHYROIDISM
     Route: 048
  5. RAMILICH [Concomitant]
     Indication: HYPERTENSION
     Route: 048
  6. BISOPROLOL [Concomitant]
     Indication: HYPERTENSION
     Route: 048
  7. CLOPIDOGREL [Concomitant]
     Indication: PLATELET AGGREGATION INHIBITION
     Route: 048
  8. AMLODIPIN [Concomitant]
     Indication: HYPERTENSION
     Route: 048
  9. CITALOPRAM [Concomitant]
     Indication: DEPRESSION
     Route: 048
  10. TORASEMID [Concomitant]
     Indication: CARDIAC FAILURE
     Route: 048
  11. LYRICA [Concomitant]
     Indication: RESTLESS LEGS SYNDROME
     Route: 048
  12. LYRICA [Concomitant]
     Indication: RESTLESS LEGS SYNDROME
     Route: 048
  13. MARCUMAR [Concomitant]
     Indication: ANTICOAGULANT THERAPY
     Route: 048
  14. IBUFLAM [Concomitant]
     Indication: OSTEOARTHRITIS
     Route: 048

REACTIONS (10)
  - Pulmonary fibrosis [Not Recovered/Not Resolved]
  - Cardiac failure [Not Recovered/Not Resolved]
  - Arrhythmia [Not Recovered/Not Resolved]
  - Dizziness [Unknown]
  - Depressed mood [Unknown]
  - Sleep disorder [Unknown]
  - Constipation [Unknown]
  - Confusional state [Unknown]
  - Somnolence [Unknown]
  - Drug ineffective [Recovered/Resolved]
